FAERS Safety Report 5593255-1 (Version None)
Quarter: 2008Q1

REPORT INFORMATION
  Report Type: 
  Country: None (occurrence: None)
  Receive Date: 20080116
  Receipt Date: 20080116
  Transmission Date: 20080703
  Serious: Yes (Other)
  Sender: FDA-Public Use
  Company Number: None

PATIENT
  Age: 73 Year
  Sex: Female
  Weight: 58.0604 kg

DRUGS (1)
  1. NABUMETONE [Suspect]
     Indication: BACK PAIN
     Dosage: 500 MG TABLETS 2 TIMES A DAY PO
     Route: 048

REACTIONS (4)
  - DYSPEPSIA [None]
  - DYSPHAGIA [None]
  - OESOPHAGITIS [None]
  - VOMITING [None]
